FAERS Safety Report 7711696-0 (Version None)
Quarter: 2011Q3

REPORT INFORMATION
  Report Type: 
  Country: None (occurrence: None)
  Receive Date: 20110826
  Receipt Date: 20110815
  Transmission Date: 20111222
  Serious: No
  Sender: FDA-Public Use
  Company Number: US-B.I. PHARMACEUTICALS,INC./RIDGEFIELD-2011-BP-20054BP

PATIENT
  Age: 62 Year
  Sex: Female

DRUGS (2)
  1. CITRACAL [Concomitant]
     Indication: SUPPLEMENTATION THERAPY
     Route: 048
  2. SPIRIVA [Suspect]
     Indication: CHRONIC OBSTRUCTIVE PULMONARY DISEASE
     Dosage: 18 MCG
     Route: 055
     Dates: start: 20110719, end: 20110722

REACTIONS (4)
  - SWOLLEN TONGUE [None]
  - SWELLING FACE [None]
  - LIP SWELLING [None]
  - RASH PRURITIC [None]
